FAERS Safety Report 8726321 (Version 2)
Quarter: 2012Q4

REPORT INFORMATION
  Report Type: 
  Country: GR (occurrence: GR)
  Receive Date: 20120816
  Receipt Date: 20120911
  Transmission Date: 20130627
  Serious: Yes (Death, Hospitalization, Disabling, Other)
  Sender: FDA-Public Use
  Company Number: PHHY2012GR070477

PATIENT
  Age: 57 Year
  Sex: Female

DRUGS (3)
  1. AFINITOR [Suspect]
     Dosage: 1 DF, QD
     Route: 048
     Dates: start: 20120720, end: 20120810
  2. AROMASIN [Concomitant]
     Dosage: 1 DF, QD
     Route: 048
     Dates: start: 20120720, end: 20120810
  3. LITHIUM [Concomitant]
     Dosage: 1 DF, QD
     Route: 048
     Dates: end: 20120808

REACTIONS (6)
  - Death [Fatal]
  - Confusional state [Not Recovered/Not Resolved]
  - Vomiting [Recovering/Resolving]
  - Diarrhoea [Recovering/Resolving]
  - Coma [Not Recovered/Not Resolved]
  - Speech disorder [Unknown]
